FAERS Safety Report 6860712-7 (Version None)
Quarter: 2010Q3

REPORT INFORMATION
  Report Type: 
  Country: None (occurrence: None)
  Receive Date: 20100720
  Receipt Date: 20100707
  Transmission Date: 20110219
  Serious: Yes (Other)
  Sender: FDA-Public Use
  Company Number: PHHY2010US45149

PATIENT
  Sex: Female

DRUGS (1)
  1. EXJADE [Suspect]
     Indication: IRON METABOLISM DISORDER
     Dosage: 500 MG, QD
     Route: 048

REACTIONS (9)
  - ARTHRALGIA [None]
  - BLISTER [None]
  - BODY TEMPERATURE INCREASED [None]
  - BURNING SENSATION [None]
  - FAECES DISCOLOURED [None]
  - GASTRITIS [None]
  - OCULAR ICTERUS [None]
  - PERNICIOUS ANAEMIA [None]
  - THYROID DISORDER [None]
